FAERS Safety Report 8490177-3 (Version None)
Quarter: 2012Q3

REPORT INFORMATION
  Report Type: 
  Country: None (occurrence: None)
  Receive Date: 20120705
  Receipt Date: 20110714
  Transmission Date: 20120928
  Serious: No
  Sender: FDA-Public Use
  Company Number: US-BAUSCH-2011BL003473

PATIENT
  Age: 51 Year
  Sex: Female
  Weight: 62 kg

DRUGS (2)
  1. OPCON-A [Suspect]
     Indication: OCULAR HYPERAEMIA
     Route: 047
     Dates: start: 20110522, end: 20110522
  2. OPCON-A [Suspect]
     Route: 047
     Dates: start: 20110523, end: 20110523

REACTIONS (8)
  - PHOTOPHOBIA [None]
  - EYE SWELLING [None]
  - VISION BLURRED [None]
  - MYDRIASIS [None]
  - EYE PAIN [None]
  - DRY EYE [None]
  - OCULAR HYPERAEMIA [None]
  - EYE PRURITUS [None]
